FAERS Safety Report 25953026 (Version 1)
Quarter: 2025Q4

REPORT INFORMATION
  Report Type: Spontaneous
  Country: US (occurrence: None)
  Receive Date: 20251023
  Receipt Date: 20251023
  Transmission Date: 20260118
  Serious: No
  Sender: FDA-CTU
  Company Number: None

PATIENT

DRUGS (1)
  1. XELJANZ [Suspect]
     Active Substance: TOFACITINIB CITRATE

REACTIONS (5)
  - Peripheral swelling [None]
  - Peripheral swelling [None]
  - Pain in extremity [None]
  - Walking aid user [None]
  - Micturition disorder [None]
